FAERS Safety Report 20300857 (Version 3)
Quarter: 2022Q3

REPORT INFORMATION
  Report Type: Report from Study
  Country: FR (occurrence: FR)
  Receive Date: 20220105
  Receipt Date: 20220930
  Transmission Date: 20221027
  Serious: Yes (Other)
  Sender: FDA-Public Use
  Company Number: FR-KYOWAKIRIN-2021BKK022052

PATIENT

DRUGS (1)
  1. BUROSUMAB [Suspect]
     Active Substance: BUROSUMAB
     Indication: Hereditary hypophosphataemic rickets
     Dosage: UNK
     Route: 065

REACTIONS (1)
  - Nephrocalcinosis [Not Recovered/Not Resolved]

NARRATIVE: CASE EVENT DATE: 20211201
